FAERS Safety Report 8396497-5 (Version None)
Quarter: 2012Q2

REPORT INFORMATION
  Report Type: 
  Country: None (occurrence: None)
  Receive Date: 20120530
  Receipt Date: 20120523
  Transmission Date: 20120825
  Serious: Yes (Hospitalization, Other)
  Sender: FDA-Public Use
  Company Number: FR-ACTELION-A-CH2011-54284

PATIENT
  Sex: Female

DRUGS (5)
  1. ZAVESCA [Suspect]
     Dosage: 100 MG, BID
     Route: 048
     Dates: start: 20110906
  2. ZAVESCA [Suspect]
     Indication: NIEMANN-PICK DISEASE
     Dosage: 200 MG, BID
     Route: 048
     Dates: end: 20110905
  3. ZAVESCA [Suspect]
     Dosage: 200 MG, OD
     Route: 048
     Dates: start: 20101210
  4. KEPPRA [Concomitant]
  5. CLOBAZAM [Concomitant]

REACTIONS (4)
  - GROWTH RETARDATION [None]
  - DYSSTASIA [None]
  - CONVULSION [None]
  - WEIGHT DECREASED [None]
